FAERS Safety Report 12808448 (Version 1)
Quarter: 2016Q4

REPORT INFORMATION
  Report Type: Spontaneous
  Country: JP (occurrence: JP)
  Receive Date: 20161004
  Receipt Date: 20161004
  Transmission Date: 20170207
  Serious: Yes (Other)
  Sender: FDA-Public Use
  Company Number: JP-PFIZER INC-2016454165

PATIENT
  Age: 34 Year
  Sex: Male

DRUGS (2)
  1. METHYLPREDNISOLONE SODIUM SUCCINATE. [Suspect]
     Active Substance: METHYLPREDNISOLONE SODIUM SUCCINATE
     Indication: IGA NEPHROPATHY
     Dosage: 500 MG CYCLIC (3 DAYS)
     Route: 042
  2. PREDNISOLONE. [Suspect]
     Active Substance: PREDNISOLONE
     Indication: IGA NEPHROPATHY
     Dosage: 30 MG CYCLIC (4 DAYS)
     Route: 048

REACTIONS (1)
  - Retinal pigment epitheliopathy [Recovering/Resolving]
